FAERS Safety Report 4339460-3 (Version None)
Quarter: 2004Q2

REPORT INFORMATION
  Report Type: 
  Country: None (occurrence: None)
  Receive Date: 20040412
  Receipt Date: 20040331
  Transmission Date: 20050107
  Serious: Yes (Life-Threatening, Other)
  Sender: FDA-Public Use
  Company Number: GB-JNJFOC-20040400316

PATIENT
  Age: 60 Year
  Sex: Female

DRUGS (5)
  1. MICONAZOLE [Suspect]
     Indication: ORAL CANDIDIASIS
     Dosage: 5 ML, 1 IN 1 DAY, ORAL
     Route: 048
     Dates: start: 20040227, end: 20040301
  2. ATENOLOL [Concomitant]
  3. SIMVASTATIN [Concomitant]
  4. ACETAMINOPHEN [Concomitant]
  5. DIHYDROCODEINE (DIHYDROCODEINE) [Concomitant]

REACTIONS (1)
  - INTERNATIONAL NORMALISED RATIO INCREASED [None]
